FAERS Safety Report 7315485-0 (Version None)
Quarter: 2011Q1

REPORT INFORMATION
  Report Type: 
  Country: None (occurrence: None)
  Receive Date: 20110218
  Receipt Date: 20110218
  Transmission Date: 20110831
  Serious: Yes (Hospitalization)
  Sender: FDA-Public Use
  Company Number: None

PATIENT
  Age: 76 Year
  Sex: Male
  Weight: 96.3 kg

DRUGS (9)
  1. LIPITOR [Concomitant]
  2. COUMADIN [Suspect]
     Dosage: 7MG/ 5MG WED / 6 DAY/WK PO CHRONIC
     Route: 048
  3. LOPRESSOR [Concomitant]
  4. DAPSONE [Concomitant]
  5. HUMALOG [Concomitant]
  6. COZAAR [Concomitant]
  7. ASA [Suspect]
     Indication: ATRIAL FIBRILLATION
     Dosage: 81MG DAILY PO CHRONIC
     Route: 048
  8. ASA [Suspect]
     Indication: CORONARY ARTERY DISEASE
     Dosage: 81MG DAILY PO CHRONIC
     Route: 048
  9. TRAMADOL [Concomitant]

REACTIONS (4)
  - HAEMORRHAGIC ANAEMIA [None]
  - ACUTE MYOCARDIAL INFARCTION [None]
  - DUODENAL ULCER [None]
  - GASTROINTESTINAL HAEMORRHAGE [None]
